FAERS Safety Report 7605629 (Version 4)
Quarter: 2020Q3

REPORT INFORMATION
  Report Type: Report from Study
  Country: US (occurrence: US)
  Receive Date: 20100924
  Receipt Date: 20110118
  Transmission Date: 20201104
  Serious: Yes (Hospitalization)
  Sender: FDA-Public Use
  Company Number: US-JNJFOC-20100904544

PATIENT
  Age: 32 Year
  Sex: Male
  Weight: 80 kg

DRUGS (9)
  1. GOLIMUMAB [Suspect]
     Active Substance: GOLIMUMAB
     Route: 058
  2. BAYER EXTRA STRENGTH BACK AND BODY PAIN [Concomitant]
     Route: 048
  3. SOMA [Concomitant]
     Active Substance: CARISOPRODOL
     Route: 048
  4. GOLIMUMAB [Suspect]
     Active Substance: GOLIMUMAB
     Route: 058
  5. LORCET [Concomitant]
     Active Substance: ACETAMINOPHEN\HYDROCODONE BITARTRATE
     Route: 048
  6. GOLIMUMAB [Suspect]
     Active Substance: GOLIMUMAB
     Route: 058
  7. IBUPROFEN. [Concomitant]
     Active Substance: IBUPROFEN
     Route: 048
  8. PHENERGAN [Concomitant]
     Active Substance: PROMETHAZINE HYDROCHLORIDE
     Route: 048
  9. GOLIMUMAB [Suspect]
     Active Substance: GOLIMUMAB
     Indication: ANKYLOSING SPONDYLITIS
     Route: 058

REACTIONS (5)
  - Sepsis [Recovered/Resolved]
  - Tachycardia [None]
  - Pneumonia [Recovered/Resolved]
  - Cellulitis [None]
  - Hypertension [None]

NARRATIVE: CASE EVENT DATE: 20100820
